FAERS Safety Report 6719476-X (Version None)
Quarter: 2010Q2

REPORT INFORMATION
  Report Type: 
  Country: None (occurrence: None)
  Receive Date: 20100510
  Receipt Date: 20100510
  Transmission Date: 20101027
  Serious: Yes (Other)
  Sender: FDA-Public Use
  Company Number: None

PATIENT
  Age: 31 Year
  Sex: Female
  Weight: 56.6996 kg

DRUGS (4)
  1. PRISTIQ [Suspect]
     Indication: DEPRESSION
     Dosage: 50MG QD PO
     Route: 048
     Dates: start: 20090801, end: 20100427
  2. PRISTIQ [Suspect]
     Indication: PAIN
     Dosage: 50MG QD PO
     Route: 048
     Dates: start: 20090801, end: 20100427
  3. TRAMODOL 50MG [Concomitant]
  4. GABAPENTIN 650 QID [Concomitant]

REACTIONS (8)
  - CRYING [None]
  - DRUG INEFFECTIVE [None]
  - DRUG WITHDRAWAL SYNDROME [None]
  - IMPAIRED WORK ABILITY [None]
  - IRRITABILITY [None]
  - MALAISE [None]
  - PARAESTHESIA [None]
  - THINKING ABNORMAL [None]
